FAERS Safety Report 25663477 (Version 2)
Quarter: 2025Q3

REPORT INFORMATION
  Report Type: Report from Study
  Country: US (occurrence: US)
  Receive Date: 20250811
  Receipt Date: 20250818
  Transmission Date: 20251020
  Serious: Yes (Other)
  Sender: ALEXION PHARMACEUTICALS
  Company Number: US-AstraZeneca-CH-00926202A

PATIENT
  Sex: Female

DRUGS (1)
  1. BREZTRI [Suspect]
     Active Substance: BUDESONIDE\FORMOTEROL\GLYCOPYRROLATE
     Route: 065

REACTIONS (16)
  - Drug hypersensitivity [Unknown]
  - Gastrooesophageal reflux disease [Unknown]
  - Chronic sinusitis [Unknown]
  - Chronic obstructive pulmonary disease [Unknown]
  - Atrial fibrillation [Unknown]
  - Hypothyroidism [Unknown]
  - Heart failure with preserved ejection fraction [Unknown]
  - Osteoarthritis [Unknown]
  - Atrioventricular block [Unknown]
  - Neuropathy peripheral [Unknown]
  - Pain [Unknown]
  - Pain [Unknown]
  - Osteoporosis [Unknown]
  - Fracture [Unknown]
  - Depression [Unknown]
  - Anxiety [Unknown]
